FAERS Safety Report 6612234-6 (Version None)
Quarter: 2010Q1

REPORT INFORMATION
  Report Type: 
  Country: None (occurrence: None)
  Receive Date: 20100303
  Receipt Date: 20100222
  Transmission Date: 20100710
  Serious: Yes (Hospitalization)
  Sender: FDA-Public Use
  Company Number: TR-WATSON-2010-02323

PATIENT
  Age: 48 Year
  Sex: Female

DRUGS (2)
  1. CITALOPRAM HYDROBROMIDE [Suspect]
     Indication: DEPRESSION
     Dosage: 20 MG, DAILY
  2. ZOLMITRIPTAN [Suspect]
     Indication: MIGRAINE
     Dosage: 5 MG, DAILY

REACTIONS (2)
  - ACUTE MYOCARDIAL INFARCTION [None]
  - PRINZMETAL ANGINA [None]
